FAERS Safety Report 7203706-4 (Version None)
Quarter: 2010Q4

REPORT INFORMATION
  Report Type: 
  Country: None (occurrence: None)
  Receive Date: 20101230
  Receipt Date: 20101217
  Transmission Date: 20110411
  Serious: No
  Sender: FDA-Public Use
  Company Number: PHHY2010US71967

PATIENT
  Sex: Male

DRUGS (4)
  1. EXJADE [Suspect]
     Indication: SICKLE CELL ANAEMIA
     Dosage: 1750 MG, QD
     Route: 048
     Dates: start: 20100301
  2. EXJADE [Suspect]
     Indication: IRON OVERLOAD
  3. ALBUTEROL [Concomitant]
     Indication: ASTHMA
     Dosage: 2 4 HR PM WHEEZING
     Dates: start: 19990222
  4. FOLIC ACID [Concomitant]
     Dosage: 1 MG EACH DAY
     Route: 048
     Dates: start: 20070710

REACTIONS (1)
  - DIARRHOEA [None]
